APPROVED DRUG PRODUCT: ARTICAINE HYDROCHLORIDE AND EPINEPHRINE BITARTRATE
Active Ingredient: ARTICAINE HYDROCHLORIDE; EPINEPHRINE BITARTRATE
Strength: 4%;EQ 0.017MG BASE/1.7ML (4%;EQ 0.01MG BASE/ML)
Dosage Form/Route: INJECTABLE;INJECTION
Application: A079138 | Product #001
Applicant: HOSPIRA INC
Approved: Jun 18, 2010 | RLD: No | RS: No | Type: DISCN